FAERS Safety Report 6381379-0 (Version None)
Quarter: 2009Q3

REPORT INFORMATION
  Report Type: 
  Country: None (occurrence: None)
  Receive Date: 20090924
  Receipt Date: 20090914
  Transmission Date: 20100115
  Serious: Yes (Other)
  Sender: FDA-Public Use
  Company Number: 2009SP025797

PATIENT
  Age: 55 Year
  Sex: Male

DRUGS (4)
  1. EPTIFIBATIDE [Suspect]
     Indication: ACUTE CORONARY SYNDROME
     Dosage: 180 MCG/KG;ONCE ; 2 MCG/KG
  2. CLOPIDOGREL [Concomitant]
  3. HEPARIN [Concomitant]
  4. ACETYLSALICYLIC ACID [Concomitant]

REACTIONS (4)
  - BRADYCARDIA [None]
  - HYPOTENSION [None]
  - PYREXIA [None]
  - THROMBOCYTOPENIA [None]
